FAERS Safety Report 16961735 (Version 2)
Quarter: 2020Q3

REPORT INFORMATION
  Report Type: Report from Study
  Country: None (occurrence: AR)
  Receive Date: 20191025
  Receipt Date: 20200828
  Transmission Date: 20201102
  Serious: Yes (Other)
  Sender: FDA-Public Use
  Company Number: AR-ABBVIE-19K-007-2978169-00

PATIENT
  Age: 59 Year
  Sex: Male

DRUGS (1)
  1. HUMIRA [Suspect]
     Active Substance: ADALIMUMAB
     Indication: PSORIATIC ARTHROPATHY
     Route: 058
     Dates: start: 20130717

REACTIONS (1)
  - Intestinal polyp [Unknown]

NARRATIVE: CASE EVENT DATE: 201907
